FAERS Safety Report 11131892 (Version 3)
Quarter: 2015Q2

REPORT INFORMATION
  Report Type: Spontaneous
  Country: US (occurrence: US)
  Receive Date: 20150522
  Receipt Date: 20150522
  Transmission Date: 20150821
  Serious: Yes (Other)
  Sender: FDA-Public Use
  Company Number: US-GLAXOSMITHKLINE-US2015GSK063943

PATIENT
  Age: 79 Year
  Sex: Male

DRUGS (1)
  1. TANZEUM [Suspect]
     Active Substance: ALBIGLUTIDE
     Indication: TYPE 2 DIABETES MELLITUS
     Dosage: 30 MG, WE
     Route: 042
     Dates: start: 20150421

REACTIONS (15)
  - Feeling abnormal [Unknown]
  - Pain [Unknown]
  - Drug ineffective [Unknown]
  - Bradyphrenia [Not Recovered/Not Resolved]
  - Spinal operation [Unknown]
  - Myalgia [Unknown]
  - Wheezing [Not Recovered/Not Resolved]
  - Malaise [Not Recovered/Not Resolved]
  - Blood glucose increased [Not Recovered/Not Resolved]
  - Asthenia [Not Recovered/Not Resolved]
  - Dizziness [Not Recovered/Not Resolved]
  - Cough [Not Recovered/Not Resolved]
  - Insomnia [Unknown]
  - Hypersomnia [Unknown]
  - Asthenia [Unknown]

NARRATIVE: CASE EVENT DATE: 2015
